FAERS Safety Report 8601105-1 (Version None)
Quarter: 2012Q3

REPORT INFORMATION
  Report Type: 
  Country: None (occurrence: None)
  Receive Date: 20120817
  Receipt Date: 20120807
  Transmission Date: 20120928
  Serious: Yes (Other)
  Sender: FDA-Public Use
  Company Number: PHHY2011US65550

PATIENT
  Sex: Male
  Weight: 96.145 kg

DRUGS (7)
  1. GLEEVEC [Suspect]
     Dosage: 600 MG, DAILY
     Route: 048
     Dates: start: 20110821
  2. CLARITIN [Concomitant]
     Dosage: UNK
  3. GLEEVEC [Suspect]
     Indication: CHRONIC MYELOID LEUKAEMIA
     Dosage: 400 MG, QD
     Route: 048
  4. LISINOPRIL [Concomitant]
     Dosage: UNK
  5. AUGMENTIN '500' [Concomitant]
     Dosage: 875 MG, UNK
     Route: 048
     Dates: start: 20110208, end: 20110218
  6. TASIGNA [Suspect]
     Indication: CHRONIC MYELOID LEUKAEMIA
     Dosage: 150 MG, BID
     Route: 048
     Dates: start: 20101227, end: 20110223
  7. TASIGNA [Suspect]
     Dosage: 300 MG, BID
     Route: 048
     Dates: start: 20110223, end: 20110629

REACTIONS (2)
  - RASH [None]
  - BLISTER [None]
